FAERS Safety Report 25121098 (Version 1)
Quarter: 2025Q1

REPORT INFORMATION
  Report Type: Spontaneous
  Country: CN (occurrence: CN)
  Receive Date: 20250326
  Receipt Date: 20250326
  Transmission Date: 20250409
  Serious: Yes (Other)
  Sender: NOVO NORDISK
  Company Number: CN-NOVOPROD-1392533

PATIENT
  Age: 62 Year
  Sex: Male
  Weight: 64 kg

DRUGS (1)
  1. NOVORAPID [Suspect]
     Active Substance: INSULIN ASPART
     Indication: Type 2 diabetes mellitus
     Dosage: 17 IU, QD (5 UNITS BEFORE BREAKFAST, AND 6 UNITS BEFORE LUNCH AND DINNER), ABDOMINAL INJECTION
     Dates: start: 2019

REACTIONS (3)
  - Renal failure [Unknown]
  - Cardiac failure [Unknown]
  - Visual impairment [Unknown]
